FAERS Safety Report 8258473-2 (Version None)
Quarter: 2012Q2

REPORT INFORMATION
  Report Type: 
  Country: None (occurrence: None)
  Receive Date: 20120404
  Receipt Date: 20120329
  Transmission Date: 20120825
  Serious: Yes (Other)
  Sender: FDA-Public Use
  Company Number: US-PFIZER INC-2012081117

PATIENT
  Sex: Female
  Weight: 68 kg

DRUGS (11)
  1. CLONAZEPAM [Concomitant]
     Dosage: 0.5MG IN MORNING AND 2.5MG AT NIGHT, 2X/DAY
  2. CALCIUM [Concomitant]
     Dosage: UNK, 1X/DAY
  3. FISH OIL [Concomitant]
     Dosage: 2 G, 2X/DAY
  4. PROTONIX [Concomitant]
     Dosage: 40 MG, 1X/DAY
  5. VISTARIL [Concomitant]
     Dosage: 25 MG, 3X/DAY
  6. ZYPREXA [Concomitant]
     Dosage: 20 MG, 1X/DAY
  7. VITAMIN D [Concomitant]
     Dosage: UNK, 1X/DAY
  8. POTASSIUM PENCILLIN G [Suspect]
     Dosage: UNK
  9. LIDOCAINE [Concomitant]
     Dosage: 3 DF DAILY
  10. TOPAMAX [Concomitant]
     Dosage: 50 MG, 3X/DAY
  11. MULTI-VITAMINS [Concomitant]
     Dosage: UNK, 1X/DAY

REACTIONS (2)
  - CELLULITIS [None]
  - DRUG HYPERSENSITIVITY [None]
